FAERS Safety Report 7446466-4 (Version None)
Quarter: 2011Q2

REPORT INFORMATION
  Report Type: 
  Country: None (occurrence: None)
  Receive Date: 20110429
  Receipt Date: 20100713
  Transmission Date: 20111010
  Serious: No
  Sender: FDA-Public Use
  Company Number: US-ASTRAZENECA-2010SE31434

PATIENT
  Sex: Female
  Weight: 149.8 kg

DRUGS (2)
  1. NEXIUM [Suspect]
     Route: 048
  2. METOPROLOL SUCCINATE [Suspect]
     Route: 048

REACTIONS (2)
  - URINARY TRACT INFECTION [None]
  - LABILE BLOOD PRESSURE [None]
